FAERS Safety Report 8590860 (Version 2)
Quarter: 2012Q4

REPORT INFORMATION
  Report Type: 
  Country: US (occurrence: US)
  Receive Date: 20120601
  Receipt Date: 20121024
  Transmission Date: 20130627
  Serious: Yes (Death, Other)
  Sender: FDA-Public Use
  Company Number: US-BAYER-2012-052612

PATIENT
  Age: 40 Year
  Sex: Female
  Weight: 65.76 kg

DRUGS (3)
  1. YAZ [Suspect]
     Indication: PREMENSTRUAL SYNDROME
     Dosage: UNK
     Dates: start: 200710, end: 20100706
  2. YAZ [Suspect]
     Indication: IRREGULAR MENSTRUATION
  3. SIMVASTATIN [Concomitant]
     Indication: CHOLESTEROL LEVELS RAISED
     Dosage: 40 mg, UNK
     Route: 048
     Dates: start: 200904, end: 201005

REACTIONS (8)
  - Myocardial infarction [Fatal]
  - Pain [Fatal]
  - Pulmonary embolism [None]
  - Injury [None]
  - General physical health deterioration [None]
  - Emotional distress [None]
  - Anxiety [None]
  - Anhedonia [None]
